FAERS Safety Report 9782503 (Version 1)
Quarter: 2013Q4

REPORT INFORMATION
  Report Type: Spontaneous
  Country: GB (occurrence: None)
  Receive Date: 20131220
  Receipt Date: 20131220
  Transmission Date: 20140711
  Serious: Yes (Hospitalization)
  Sender: FDA-Public Use
  Company Number: 2013P1021920

PATIENT
  Age: 67 Year
  Sex: Male

DRUGS (3)
  1. ROPINIROLE [Suspect]
     Indication: PARKINSON^S DISEASE
  2. COCARELDOPA [Suspect]
     Indication: PARKINSON^S DISEASE
     Dosage: 100/25 MG
  3. SELEGILINE [Suspect]
     Indication: PARKINSON^S DISEASE

REACTIONS (13)
  - Orthostatic hypotension [None]
  - Labile blood pressure [None]
  - Confusional state [None]
  - Muscle rigidity [None]
  - Hallucination [None]
  - Tremor [None]
  - Musculoskeletal stiffness [None]
  - Hyperhidrosis [None]
  - Tachypnoea [None]
  - Tachycardia [None]
  - Hallucination, visual [None]
  - Fall [None]
  - Body temperature increased [None]
